FAERS Safety Report 8072684-0 (Version None)
Quarter: 2012Q1

REPORT INFORMATION
  Report Type: 
  Country: None (occurrence: None)
  Receive Date: 20120126
  Receipt Date: 20120123
  Transmission Date: 20120608
  Serious: Yes (Death, Hospitalization)
  Sender: FDA-Public Use
  Company Number: US-JNJFOC-20120109663

PATIENT
  Sex: Male
  Weight: 77.11 kg

DRUGS (6)
  1. MULTI-VITAMINS [Concomitant]
     Route: 065
  2. FLOMAX [Concomitant]
     Route: 065
  3. PERCOCET [Concomitant]
     Indication: PAIN
     Route: 065
  4. PREDNISONE TAB [Concomitant]
     Route: 065
  5. ZYTIGA [Suspect]
     Indication: PROSTATE CANCER
     Route: 048
     Dates: start: 20111101, end: 20120109
  6. PEPCID [Concomitant]
     Route: 065

REACTIONS (4)
  - ADVERSE DRUG REACTION [None]
  - PROSTATE CANCER [None]
  - LABORATORY TEST ABNORMAL [None]
  - DYSPHAGIA [None]
